FAERS Safety Report 9764200 (Version 1)
Quarter: 2013Q4

REPORT INFORMATION
  Report Type: Spontaneous
  Country: US (occurrence: US)
  Receive Date: 20131216
  Receipt Date: 20131216
  Transmission Date: 20140711
  Serious: Yes (Death, Disabling, Other)
  Sender: FDA-Public Use
  Company Number: US-CELGENEUS-163-21660-13121777

PATIENT
  Age: 55 Year
  Sex: Female
  Weight: 45.67 kg

DRUGS (9)
  1. ABRAXANE [Suspect]
     Indication: BREAST CANCER METASTATIC
     Route: 058
     Dates: start: 20130729
  2. ABRAXANE [Suspect]
     Route: 058
     Dates: start: 20131015, end: 20131022
  3. GEMZAR [Suspect]
     Indication: BREAST CANCER METASTATIC
     Route: 065
     Dates: start: 20130729
  4. GEMZAR [Suspect]
     Route: 065
     Dates: start: 20131022, end: 20131029
  5. RUXOLITINIB [Suspect]
     Indication: BREAST CANCER METASTATIC
     Dosage: 10 MILLIGRAM
     Route: 048
     Dates: start: 20130730, end: 20130918
  6. RUXOLITINIB [Suspect]
     Dosage: 10 MILLIGRAM
     Route: 048
     Dates: start: 20131028, end: 20131029
  7. LORTAB [Concomitant]
     Indication: PRODUCT USED FOR UNKNOWN INDICATION
     Route: 065
  8. GABAPENTIN [Concomitant]
     Indication: PRODUCT USED FOR UNKNOWN INDICATION
     Route: 065
     Dates: start: 20131022
  9. GABAPENTIN [Concomitant]
     Dosage: 900 MILLIGRAM
     Route: 065
     Dates: start: 2013

REACTIONS (7)
  - Breast cancer metastatic [Fatal]
  - Diarrhoea [Recovering/Resolving]
  - Dehydration [Recovering/Resolving]
  - Nausea [Recovering/Resolving]
  - Granulocytopenia [Recovering/Resolving]
  - Thrombocytopenia [Recovering/Resolving]
  - Asthenia [Unknown]
